FAERS Safety Report 8143989-X (Version None)
Quarter: 2012Q1

REPORT INFORMATION
  Report Type: 
  Country: None (occurrence: None)
  Receive Date: 20120217
  Receipt Date: 20120217
  Transmission Date: 20120608
  Serious: Yes (Other)
  Sender: FDA-Public Use
  Company Number: None

PATIENT
  Age: 30 Year
  Sex: Female
  Weight: 63.502 kg

DRUGS (2)
  1. AZITHROMYCIN [Concomitant]
     Route: 048
  2. METHYLPREDNISOLONE [Suspect]
     Indication: BRONCHITIS
     Dosage: 4 MG DOSEPACK
     Route: 048
     Dates: start: 20120212, end: 20120213

REACTIONS (2)
  - ASTHMA [None]
  - PANIC ATTACK [None]
